FAERS Safety Report 10191374 (Version 1)
Quarter: 2014Q2

REPORT INFORMATION
  Report Type: Spontaneous
  Country: GB (occurrence: None)
  Receive Date: 20140521
  Receipt Date: 20140521
  Transmission Date: 20141212
  Serious: Yes (Other)
  Sender: FDA-Public Use
  Company Number: 2014P1004060

PATIENT
  Sex: 0

DRUGS (1)
  1. CIPROFLOXACIN [Suspect]
     Indication: PROSTATITIS
     Dates: start: 20131213

REACTIONS (16)
  - Vision blurred [None]
  - Vitreous floaters [None]
  - Tinnitus [None]
  - Anxiety [None]
  - Nervousness [None]
  - Mental disorder [None]
  - Myalgia [None]
  - Tendon pain [None]
  - Headache [None]
  - Musculoskeletal pain [None]
  - Rotator cuff syndrome [None]
  - Pain in extremity [None]
  - Arthralgia [None]
  - Myalgia [None]
  - Arthralgia [None]
  - Pain in jaw [None]
